FAERS Safety Report 11927911 (Version 2)
Quarter: 2020Q3

REPORT INFORMATION
  Report Type: Report from Study
  Country: US (occurrence: US)
  Receive Date: 20160119
  Receipt Date: 20160129
  Transmission Date: 20201104
  Serious: Yes (Death)
  Sender: FDA-Public Use
  Company Number: US-JNJFOC-20150906491

PATIENT
  Age: 60 Year
  Sex: Female
  Weight: 53.52 kg

DRUGS (8)
  1. DARATUMUMAB [Suspect]
     Active Substance: DARATUMUMAB
     Indication: PLASMA CELL MYELOMA
     Route: 042
     Dates: start: 20150722, end: 20150826
  2. DEXAMETHASONE. [Concomitant]
     Active Substance: DEXAMETHASONE
     Indication: PAIN IN EXTREMITY
     Route: 048
     Dates: start: 20150704, end: 20150831
  3. DARATUMUMAB [Suspect]
     Active Substance: DARATUMUMAB
     Route: 042
  4. FENTANYL. [Concomitant]
     Active Substance: FENTANYL
     Indication: BACK PAIN
     Route: 065
     Dates: start: 20150828, end: 20150831
  5. DEXAMETHASONE. [Concomitant]
     Active Substance: DEXAMETHASONE
     Indication: BACK PAIN
     Route: 048
     Dates: start: 20150704, end: 20150831
  6. MORPHINE IMMEDIATE RELEASE [Concomitant]
     Indication: PAIN IN EXTREMITY
     Route: 048
     Dates: start: 20150721, end: 20150831
  7. FENTANYL. [Concomitant]
     Active Substance: FENTANYL
     Indication: PAIN IN EXTREMITY
     Route: 065
     Dates: start: 20150828, end: 20150831
  8. MORPHINE IMMEDIATE RELEASE [Concomitant]
     Indication: BACK PAIN
     Route: 048
     Dates: start: 20150721, end: 20150831

REACTIONS (5)
  - Neutropenia [Fatal]
  - Sepsis [Fatal]
  - Pancytopenia [Fatal]
  - Platelet count decreased [Unknown]
  - Organ failure [Fatal]

NARRATIVE: CASE EVENT DATE: 20150830
